FAERS Safety Report 9153612 (Version 1)
Quarter: 2013Q1

REPORT INFORMATION
  Report Type: Spontaneous
  Country: NL (occurrence: NL)
  Receive Date: 20130311
  Receipt Date: 20130311
  Transmission Date: 20140127
  Serious: Yes (Other)
  Sender: FDA-Public Use
  Company Number: PHHY2013NL022564

PATIENT
  Age: 53 None
  Sex: Female

DRUGS (3)
  1. ZOMETA [Suspect]
     Indication: BREAST CANCER METASTATIC
     Dosage: 4 MG, PER 100 ML ONCE PER 84 DAYS
     Route: 042
  2. ZOMETA [Suspect]
     Dosage: 4 MG, PER 100 ML ONCE PER 84 DAYS
     Route: 042
     Dates: start: 20100202
  3. ZOMETA [Suspect]
     Dosage: 4 MG, PER 100 ML ONCE PER 84 DAYS
     Route: 042
     Dates: start: 20130211

REACTIONS (2)
  - Osteonecrosis [Not Recovered/Not Resolved]
  - Loose tooth [Not Recovered/Not Resolved]
